FAERS Safety Report 10259040 (Version 2)
Quarter: 2014Q2

REPORT INFORMATION
  Report Type: Spontaneous
  Country: US (occurrence: US)
  Receive Date: 20140625
  Receipt Date: 20140625
  Transmission Date: 20141212
  Serious: No
  Sender: FDA-Public Use
  Company Number: US-ASTELLAS-2013US010641

PATIENT
  Sex: Female

DRUGS (7)
  1. VESICARE [Suspect]
     Indication: POLLAKIURIA
     Route: 048
     Dates: start: 201309
  2. VESICARE [Suspect]
     Dosage: 10 MG, HALF TABLET DAILY
     Route: 048
  3. VESICARE [Suspect]
     Route: 048
  4. CRESTOR [Concomitant]
     Indication: PRODUCT USED FOR UNKNOWN INDICATION
     Route: 065
  5. XANAX [Concomitant]
     Indication: PRODUCT USED FOR UNKNOWN INDICATION
     Route: 065
  6. ASPIRIN [Concomitant]
     Indication: PRODUCT USED FOR UNKNOWN INDICATION
     Route: 065
  7. VITAMIN B12 [Concomitant]
     Indication: PRODUCT USED FOR UNKNOWN INDICATION
     Route: 065

REACTIONS (5)
  - Wrong technique in drug usage process [Unknown]
  - Dyspepsia [Unknown]
  - Rectal haemorrhage [Unknown]
  - Proctalgia [Unknown]
  - Constipation [Unknown]
